FAERS Safety Report 10285977 (Version 1)
Quarter: 2014Q3

REPORT INFORMATION
  Report Type: Spontaneous
  Country: US (occurrence: None)
  Receive Date: 20140703
  Receipt Date: 20140703
  Transmission Date: 20150326
  Serious: Yes (Other)
  Sender: FDA-Public Use
  Company Number: None

PATIENT
  Age: 57 Year
  Sex: Female
  Weight: 111.13 kg

DRUGS (1)
  1. ICY HOT ARM NECK LEG AND SMALL AREAS [Suspect]
     Active Substance: MENTHOL
     Indication: PAIN

REACTIONS (5)
  - Blister [None]
  - Rash [None]
  - Hypersensitivity [None]
  - Pain [None]
  - Swelling [None]

NARRATIVE: CASE EVENT DATE: 20140430
